FAERS Safety Report 8885579 (Version 1)
Quarter: 2012Q4

REPORT INFORMATION
  Report Type: 
  Country: FR (occurrence: FR)
  Receive Date: 20121105
  Receipt Date: 20121105
  Transmission Date: 20130627
  Serious: Yes (Hospitalization)
  Sender: FDA-Public Use
  Company Number: FR-MERCK-1210FRA012375

PATIENT
  Age: 55 None
  Sex: Male
  Weight: 105 kg

DRUGS (3)
  1. VELMETIA [Suspect]
     Indication: TYPE 2 DIABETES MELLITUS
     Dosage: 1 DF, bid
     Route: 048
     Dates: start: 20120712, end: 20120831
  2. SEVIKAR [Concomitant]
     Indication: HYPERTENSION
     Dosage: UNK
  3. PRAVASTATIN SODIUM [Concomitant]
     Indication: DYSLIPIDAEMIA
     Dosage: UNK

REACTIONS (6)
  - Cholecystitis [Unknown]
  - Abdominal pain [Unknown]
  - Nausea [Unknown]
  - Lipase increased [Unknown]
  - Liver function test abnormal [Unknown]
  - Jaundice [Unknown]
